FAERS Safety Report 7411639-3 (Version None)
Quarter: 2011Q2

REPORT INFORMATION
  Report Type: 
  Country: None (occurrence: None)
  Receive Date: 20110413
  Receipt Date: 20101007
  Transmission Date: 20111010
  Serious: Yes (Life-Threatening, Other)
  Sender: FDA-Public Use
  Company Number: US-BRISTOL-MYERS SQUIBB COMPANY-15319205

PATIENT
  Age: 50 Year
  Sex: Male

DRUGS (9)
  1. ERBITUX [Suspect]
     Indication: HEAD AND NECK CANCER
     Dosage: 09C00512A,50ML,30NOV2012 09C00566B,100ML,31DEC2012
     Route: 042
     Dates: start: 20101004
  2. PHENERGAN HCL [Concomitant]
  3. ATIVAN [Concomitant]
  4. POTASSIUM CHLORIDE [Concomitant]
  5. LISINOPRIL [Concomitant]
  6. PERCOCET [Concomitant]
  7. MULTI-VITAMIN [Concomitant]
  8. BENADRYL [Concomitant]
     Indication: PREMEDICATION
     Route: 042
  9. DECADRON [Concomitant]
     Indication: PREMEDICATION
     Route: 042

REACTIONS (1)
  - ANAPHYLACTIC REACTION [None]
